FAERS Safety Report 8735954 (Version 2)
Quarter: 2012Q4

REPORT INFORMATION
  Report Type: 
  Country: ES (occurrence: ES)
  Receive Date: 20120822
  Receipt Date: 20121001
  Transmission Date: 20130627
  Serious: Yes (Death, Life-Threatening, Hospitalization, Other)
  Sender: FDA-Public Use
  Company Number: ES-INCYTE CORPORATION-2012IN001507

PATIENT
  Age: 78 Year
  Sex: Male
  Weight: 59 kg

DRUGS (7)
  1. INC424 [Suspect]
     Indication: MYELOFIBROSIS
     Dosage: 15 mg, bid
     Route: 048
     Dates: start: 20120502, end: 20120808
  2. ZYLORIC [Concomitant]
  3. ADIRO [Concomitant]
  4. DOLAC [Concomitant]
  5. SEGURIL [Concomitant]
  6. CARDURAN [Concomitant]
  7. PANTOPRAZOLE [Concomitant]

REACTIONS (6)
  - Anaemia [Unknown]
  - Cardio-respiratory arrest [Fatal]
  - Respiratory tract infection [Unknown]
  - Pseudomonas infection [Unknown]
  - Enterobacter infection [Unknown]
  - Renal failure [Unknown]
